FAERS Safety Report 9292944 (Version 1)
Quarter: 2013Q2

REPORT INFORMATION
  Report Type: Spontaneous
  Country: US (occurrence: None)
  Receive Date: 20130513
  Receipt Date: 20130513
  Transmission Date: 20140414
  Serious: Yes (Hospitalization, Other)
  Sender: FDA-Public Use
  Company Number: 2013P1005370

PATIENT
  Age: 49 Month
  Sex: Male

DRUGS (2)
  1. PREDNISONE [Suspect]
  2. TACROLIMUS [Suspect]

REACTIONS (3)
  - Pancreatitis necrotising [None]
  - Oliguria [None]
  - Hyperglycaemia [None]
